FAERS Safety Report 12894687 (Version 1)
Quarter: 2016Q4

REPORT INFORMATION
  Report Type: Spontaneous
  Country: AU (occurrence: AU)
  Receive Date: 20161028
  Receipt Date: 20161028
  Transmission Date: 20170207
  Serious: Yes (Other)
  Sender: FDA-Public Use
  Company Number: AU-MYLANLABS-2016M1034758

PATIENT

DRUGS (3)
  1. OLANZAPINE. [Suspect]
     Active Substance: OLANZAPINE
     Indication: PRODUCT USED FOR UNKNOWN INDICATION
  2. CLOZAPINE. [Suspect]
     Active Substance: CLOZAPINE
     Indication: PRODUCT USED FOR UNKNOWN INDICATION
  3. HALOPERIDOL. [Suspect]
     Active Substance: HALOPERIDOL
     Indication: PRODUCT USED FOR UNKNOWN INDICATION
     Dosage: UNK

REACTIONS (13)
  - Blood glucose increased [Unknown]
  - Blood lactate dehydrogenase increased [Unknown]
  - Blood sodium decreased [Unknown]
  - Cardiomyopathy [Unknown]
  - Cardiac disorder [Unknown]
  - Bilirubin conjugated increased [Unknown]
  - Globulins decreased [Unknown]
  - Blood bilirubin increased [Unknown]
  - Blood creatine decreased [Unknown]
  - Psychiatric decompensation [Unknown]
  - Blood bicarbonate decreased [Unknown]
  - Blood uric acid increased [Unknown]
  - Aspartate aminotransferase increased [Unknown]
